FAERS Safety Report 11891010 (Version 1)
Quarter: 2016Q1

REPORT INFORMATION
  Report Type: Spontaneous
  Country: GB (occurrence: GB)
  Receive Date: 20160106
  Receipt Date: 20160106
  Transmission Date: 20160526
  Serious: Yes (Other)
  Sender: FDA-Public Use
  Company Number: GB-ACCORD-036777

PATIENT
  Age: 77 Year
  Sex: Male
  Weight: 90 kg

DRUGS (19)
  1. DAKTACORT [Concomitant]
     Active Substance: HYDROCORTISONE\MICONAZOLE NITRATE
     Dosage: APPLY TWICE DAILY
     Dates: start: 20150925, end: 20151009
  2. AMLODIPINE [Suspect]
     Active Substance: AMLODIPINE BESYLATE
     Indication: PRODUCT USED FOR UNKNOWN INDICATION
     Dates: start: 20150918
  3. ALENDRONATE SODIUM/ALENDRONIC ACID [Concomitant]
     Dates: start: 20150804, end: 20151207
  4. BETAHISTINE [Concomitant]
     Active Substance: BETAHISTINE
     Dosage: TAKE ONE 3 TIMES/DAY
     Dates: start: 20151002, end: 20151030
  5. COCODAMOL [Concomitant]
     Active Substance: ACETAMINOPHEN\CODEINE PHOSPHATE
     Dosage: TAKE 1 OR 2 FOUR TIMES/DAY
     Dates: start: 20150728
  6. RANITIDINE [Concomitant]
     Active Substance: RANITIDINE\RANITIDINE HYDROCHLORIDE
     Dates: start: 20150918, end: 20151201
  7. DIPYRIDAMOLE. [Concomitant]
     Active Substance: DIPYRIDAMOLE
     Dates: start: 20150728
  8. DOXAZOSIN [Concomitant]
     Active Substance: DOXAZOSIN\DOXAZOSIN MESYLATE
     Dates: start: 20151217
  9. IBUPROFEN. [Concomitant]
     Active Substance: IBUPROFEN
     Dosage: APPLY 3 TIMES/DAY
     Dates: start: 20150728
  10. ASPIRIN. [Concomitant]
     Active Substance: ASPIRIN
     Dates: start: 20150728
  11. CINNARIZINE [Concomitant]
     Active Substance: CINNARIZINE
     Dates: start: 20150728
  12. SOLIFENACIN/SOLIFENACIN SUCCINATE [Concomitant]
     Dates: start: 20150728
  13. ZEROCREAM [Concomitant]
     Dosage: USE AS DIRECTED
     Dates: start: 20150925, end: 20151023
  14. ATENOLOL/ATENOLOL HYDROCHLORIDE [Concomitant]
     Dates: start: 20150728
  15. CALCIUM CARBONATE. [Concomitant]
     Active Substance: CALCIUM CARBONATE
     Dates: start: 20150804
  16. LACTULOSE. [Concomitant]
     Active Substance: LACTULOSE
     Indication: CONSTIPATION PROPHYLAXIS
     Dates: start: 20150728
  17. OMEPRAZOLE. [Concomitant]
     Active Substance: OMEPRAZOLE
     Dates: start: 20150728
  18. QUININE [Concomitant]
     Active Substance: QUININE
     Indication: MUSCLE SPASMS
     Dosage: AT NIGHT TO HELP PREVENT CRAMP
     Dates: start: 20150728
  19. SIMVASTATIN. [Concomitant]
     Active Substance: SIMVASTATIN
     Indication: BLOOD CHOLESTEROL INCREASED
     Dosage: AT NIGHT
     Dates: start: 20150728

REACTIONS (3)
  - Asthenia [Unknown]
  - Lethargy [Recovered/Resolved]
  - Drug intolerance [Unknown]

NARRATIVE: CASE EVENT DATE: 20151217
